FAERS Safety Report 7121148-7 (Version None)
Quarter: 2010Q4

REPORT INFORMATION
  Report Type: 
  Country: None (occurrence: None)
  Receive Date: 20101124
  Receipt Date: 20101109
  Transmission Date: 20110411
  Serious: Yes (Other)
  Sender: FDA-Public Use
  Company Number: PHEH2007US14923

PATIENT
  Sex: Female
  Weight: 107 kg

DRUGS (10)
  1. ZELNORM [Suspect]
     Indication: IRRITABLE BOWEL SYNDROME
     Dosage: 2 MG, QD
     Route: 048
     Dates: start: 20030101, end: 20080901
  2. ZELNORM [Suspect]
     Dosage: 6 MG, 1 DF, BID
     Route: 048
     Dates: start: 20060907
  3. NEXIUM [Concomitant]
     Dosage: 40 MG, QD
     Route: 048
     Dates: start: 20061016
  4. PHENERGAN [Concomitant]
     Dosage: 25 MG, Q6H, PRN
     Route: 048
     Dates: start: 20061016, end: 20061003
  5. PHENERGAN [Concomitant]
     Dosage: 25 MG, Q6H, PRN
     Route: 048
     Dates: start: 20061103, end: 20070222
  6. CILOXAN [Concomitant]
     Dosage: 0.3 %, 2GTTS EYE 5XD
     Dates: start: 20061016
  7. REGELAN [Concomitant]
     Dosage: 10 MG, ONE TABLET
     Route: 048
     Dates: start: 20061016
  8. ULTRAM [Concomitant]
     Dosage: 50 MG, ONE TABLET, Q6H
     Route: 048
     Dates: start: 20061016
  9. ZYRTEC [Concomitant]
     Dosage: 10 MG, QHS
     Route: 048
     Dates: start: 20060907
  10. DIFLORASONE DIACETATE [Concomitant]
     Dosage: 0.05 %, UNK
     Dates: start: 20060907

REACTIONS (17)
  - ABDOMINAL PAIN UPPER [None]
  - ACTIVITIES OF DAILY LIVING IMPAIRED [None]
  - ARTHRALGIA [None]
  - CARDIAC DISORDER [None]
  - CHEST PAIN [None]
  - CONSTIPATION [None]
  - DERMATOPHYTOSIS [None]
  - DYSMENORRHOEA [None]
  - DYSPNOEA [None]
  - GAIT DISTURBANCE [None]
  - GASTROOESOPHAGEAL REFLUX DISEASE [None]
  - HYPERTENSION [None]
  - NAUSEA [None]
  - PAIN [None]
  - RESPIRATORY DISORDER [None]
  - UTERINE LEIOMYOMA [None]
  - VOMITING [None]
